FAERS Safety Report 7437978-8 (Version None)
Quarter: 2011Q2

REPORT INFORMATION
  Report Type: 
  Country: None (occurrence: None)
  Receive Date: 20110426
  Receipt Date: 20110419
  Transmission Date: 20111010
  Serious: Yes (Hospitalization)
  Sender: FDA-Public Use
  Company Number: FR-PFIZER INC-2011072418

PATIENT
  Age: 64 Year
  Sex: Male

DRUGS (5)
  1. FOLINIC ACID [Concomitant]
     Indication: METASTATIC GASTRIC CANCER
     Dosage: UNK
     Dates: start: 20101104
  2. CAMPTOSAR [Suspect]
     Indication: METASTATIC GASTRIC CANCER
     Dosage: 300 MG, 1X/DAY
     Route: 042
     Dates: start: 20101104
  3. XELODA [Suspect]
     Dosage: UNK
     Dates: end: 20110108
  4. XELODA [Suspect]
     Indication: METASTATIC GASTRIC CANCER
     Dosage: 3 DF, 1X/DAY
     Route: 048
     Dates: start: 20100323, end: 20100929
  5. FLUOROURACILE SANOFI [Suspect]
     Indication: METASTATIC GASTRIC CANCER
     Dosage: 700 MG THEN 3G/46 HOURS
     Route: 042
     Dates: start: 20101104

REACTIONS (1)
  - GASTROENTERITIS [None]
